FAERS Safety Report 5597863-3 (Version None)
Quarter: 2007Q4

REPORT INFORMATION
  Report Type: 
  Country: None (occurrence: None)
  Receive Date: 20071221
  Receipt Date: 20070905
  Transmission Date: 20080405
  Serious: Yes (Other)
  Sender: FDA-Public Use
  Company Number: US200709000774

PATIENT
  Age: 35 Year
  Sex: Female

DRUGS (3)
  1. HUMALOG PEN [Suspect]
  2. HUMULIN N [Suspect]
     Dates: start: 20070613, end: 20070814
  3. LANTUS [Concomitant]

REACTIONS (7)
  - ANGER [None]
  - BALANCE DISORDER [None]
  - BLOOD GLUCOSE DECREASED [None]
  - BLOOD GLUCOSE INCREASED [None]
  - CONVULSION [None]
  - DRUG EXPOSURE DURING PREGNANCY [None]
  - MOOD SWINGS [None]
